FAERS Safety Report 9209697 (Version 1)
Quarter: 2013Q1

REPORT INFORMATION
  Report Type: Spontaneous
  Country: US (occurrence: None)
  Receive Date: 20120820
  Receipt Date: 20120820
  Transmission Date: 20140127
  Serious: No
  Sender: FDA-Public Use
  Company Number: 1000030250

PATIENT
  Age: 51 Year
  Sex: Female

DRUGS (4)
  1. VIIBRYD [Suspect]
     Indication: STRESS
     Route: 048
     Dates: start: 20120426
  2. OLMESARTAN (OLMESARTAN) (OLMESARTAN) [Concomitant]
  3. ADVIL (IBUPROFEN) (IBUPROFEN) [Concomitant]
  4. LAXATIVE (NOS) (LAXATIVE (NOS) ) (LAXATIVE (NOS) ) [Concomitant]

REACTIONS (8)
  - Diarrhoea [None]
  - Abdominal distension [None]
  - Abdominal pain [None]
  - Feeling abnormal [None]
  - Panic attack [None]
  - Nervousness [None]
  - Blood pressure increased [None]
  - Off label use [None]
